FAERS Safety Report 7740593-X (Version None)
Quarter: 2011Q3

REPORT INFORMATION
  Report Type: 
  Country: None (occurrence: None)
  Receive Date: 20110909
  Receipt Date: 20110829
  Transmission Date: 20111222
  Serious: Yes (Hospitalization)
  Sender: FDA-Public Use
  Company Number: US-BAYER-2011-027915

PATIENT
  Age: 23 Year
  Sex: Female
  Weight: 88.435 kg

DRUGS (6)
  1. B-COMPLEX [VITAMIN B NOS] [Concomitant]
     Indication: SUPPLEMENTATION THERAPY
     Dosage: UNK UNK, QD
     Route: 048
     Dates: start: 20030101
  2. CIPROFLOXACIN [Concomitant]
  3. FISH OIL [Concomitant]
     Indication: SUPPLEMENTATION THERAPY
     Dosage: UNK UNK, QD
     Route: 048
     Dates: start: 20030101
  4. YASMIN [Suspect]
     Indication: ORAL CONTRACEPTION
     Dosage: UNK
     Dates: start: 20080430, end: 20081101
  5. DEPO-PROVERA [Concomitant]
     Dosage: UNK
     Dates: start: 20000101
  6. ORTHO TRI-CYCLEN LO [Concomitant]
     Dosage: UNK
     Dates: start: 20000101

REACTIONS (10)
  - PULMONARY EMBOLISM [None]
  - POST THROMBOTIC SYNDROME [None]
  - PAIN [None]
  - GENERAL PHYSICAL HEALTH DETERIORATION [None]
  - ANXIETY [None]
  - EMOTIONAL DISTRESS [None]
  - HYPOTENSION [None]
  - HEART RATE IRREGULAR [None]
  - HEART RATE INCREASED [None]
  - INJURY [None]
